FAERS Safety Report 15896933 (Version 1)
Quarter: 2019Q1

REPORT INFORMATION
  Report Type: Spontaneous
  Country: HR (occurrence: HR)
  Receive Date: 20190131
  Receipt Date: 20190131
  Transmission Date: 20190417
  Serious: Yes (Death, Hospitalization, Other)
  Sender: FDA-Public Use
  Company Number: HR-ELI_LILLY_AND_COMPANY-HR201901013170

PATIENT
  Age: 47 Year
  Sex: Male
  Weight: 106 kg

DRUGS (2)
  1. PACLITAXEL. [Suspect]
     Active Substance: PACLITAXEL
     Indication: ADENOCARCINOMA GASTRIC
     Dosage: UNK, UNKNOWN
     Route: 065
     Dates: start: 20180403
  2. RAMUCIRUMAB [Suspect]
     Active Substance: RAMUCIRUMAB
     Indication: ADENOCARCINOMA GASTRIC
     Dosage: UNK, UNKNOWN
     Route: 065
     Dates: start: 20180403

REACTIONS (7)
  - Haematemesis [Unknown]
  - Death [Fatal]
  - Anaemia [Unknown]
  - Gastritis bacterial [Unknown]
  - Gastric haemorrhage [Unknown]
  - Infusion related reaction [Unknown]
  - Neuropathy peripheral [Unknown]
